FAERS Safety Report 7560473-2 (Version None)
Quarter: 2011Q2

REPORT INFORMATION
  Report Type: 
  Country: None (occurrence: None)
  Receive Date: 20110621
  Receipt Date: 20110613
  Transmission Date: 20111010
  Serious: Yes (Hospitalization)
  Sender: FDA-Public Use
  Company Number: RU-BRISTOL-MYERS SQUIBB COMPANY-15329105

PATIENT
  Age: 70 Year
  Sex: Female

DRUGS (5)
  1. WARFARIN SODIUM [Suspect]
     Indication: THROMBOSIS PROPHYLAXIS
     Dosage: INTERR ON 19SEP10.
     Route: 048
     Dates: start: 20071114
  2. ISOSORBIDE MONONITRATE [Concomitant]
     Dates: start: 20070101
  3. PLACEBO [Suspect]
     Indication: THROMBOSIS PROPHYLAXIS
     Dosage: INTERRUPTED ON 19SEP2010
     Route: 048
     Dates: start: 20071114
  4. METOPROLOL SUCCINATE [Concomitant]
     Dates: start: 20070101
  5. LOSARTAN POTASSIUM [Concomitant]
     Dates: start: 20070101

REACTIONS (5)
  - SPLENIC RUPTURE [None]
  - ABDOMINAL INJURY [None]
  - SHOCK [None]
  - FALL [None]
  - INTRA-ABDOMINAL HAEMORRHAGE [None]
